FAERS Safety Report 15576516 (Version 10)
Quarter: 2020Q1

REPORT INFORMATION
  Report Type: Report from Study
  Country: CA (occurrence: CA)
  Receive Date: 20181101
  Receipt Date: 20200204
  Transmission Date: 20200409
  Serious: Yes (Other)
  Sender: FDA-Public Use
  Company Number: CA-PFIZER INC-2018425770

PATIENT
  Age: 6 Year
  Sex: Female
  Weight: 28 kg

DRUGS (33)
  1. ENBREL [Suspect]
     Active Substance: ETANERCEPT
     Indication: JUVENILE IDIOPATHIC ARTHRITIS
     Dosage: 25 MG, 1X/DAY
     Route: 065
  2. ENBREL [Suspect]
     Active Substance: ETANERCEPT
     Dosage: 25 MG, 1X/DAY
  3. METHOTREXATE SODIUM. [Suspect]
     Active Substance: METHOTREXATE SODIUM
     Dosage: 4 MG, 1X/DAY (QD)
     Route: 065
  4. INFLIXIMAB [Suspect]
     Active Substance: INFLIXIMAB
     Indication: JUVENILE IDIOPATHIC ARTHRITIS
     Dosage: 100 MILLIGRAM, QD (13 DAYS)
     Route: 065
  5. REMICADE [Suspect]
     Active Substance: INFLIXIMAB
     Dosage: 100 MG, 1X/DAY
     Route: 042
  6. ANAKINRA [Suspect]
     Active Substance: ANAKINRA
     Indication: JUVENILE IDIOPATHIC ARTHRITIS
     Dosage: 200 MG, 1X/DAY
  7. ANAKINRA [Suspect]
     Active Substance: ANAKINRA
     Dosage: 150 MG, 1X/DAY
  8. GAMMAGARD [Suspect]
     Active Substance: HUMAN IMMUNOGLOBULIN G
     Indication: JUVENILE IDIOPATHIC ARTHRITIS
     Dosage: 20 UNK, QD
  9. METHOTREXATE SODIUM. [Suspect]
     Active Substance: METHOTREXATE SODIUM
     Indication: JUVENILE IDIOPATHIC ARTHRITIS
     Dosage: 10 MG, 1X/DAY
  10. METHOTREXATE SODIUM. [Suspect]
     Active Substance: METHOTREXATE SODIUM
     Dosage: 20 MG, UNK
  11. IMMUNOGLOBULINS NOS [Suspect]
     Active Substance: IMMUNE GLOBULIN NOS
     Indication: JUVENILE IDIOPATHIC ARTHRITIS
     Dosage: 20 G, QD (13 DAYS)
     Route: 042
  12. KINERET [Suspect]
     Active Substance: ANAKINRA
     Dosage: 100 MG, QD (62.0 DAYS)
  13. PLACEBO [Suspect]
     Active Substance: UNSPECIFIED INGREDIENT
     Indication: JUVENILE IDIOPATHIC ARTHRITIS
     Dosage: UNK
  14. REMICADE [Suspect]
     Active Substance: INFLIXIMAB
     Indication: JUVENILE IDIOPATHIC ARTHRITIS
     Dosage: 100 MG, 1X/DAY
     Route: 042
  15. HYDROCORTISONE. [Suspect]
     Active Substance: HYDROCORTISONE
     Dosage: 7 MILLIGRAM, QD
     Route: 065
  16. ACTEMRA [Suspect]
     Active Substance: TOCILIZUMAB
     Indication: IMMUNOSUPPRESSANT DRUG THERAPY
     Dosage: 280 MILLIGRAM, QD (55 DAYS)
  17. PREDNISONE. [Suspect]
     Active Substance: PREDNISONE
     Indication: STILL^S DISEASE
     Dosage: 20 MG, 1X/DAY
  18. CELECOXIB. [Suspect]
     Active Substance: CELECOXIB
     Indication: JUVENILE IDIOPATHIC ARTHRITIS
     Dosage: 100 MG, 1X/DAY
  19. HYDROCORTISONE. [Suspect]
     Active Substance: HYDROCORTISONE
     Dosage: 7 MILLIGRAM, QD
     Route: 065
  20. TINZAPARIN [Suspect]
     Active Substance: TINZAPARIN
     Dosage: UNK, QD
     Route: 065
  21. ACETYLSALICYLIC ACID [Suspect]
     Active Substance: ASPIRIN
     Indication: JUVENILE IDIOPATHIC ARTHRITIS
     Dosage: 80 MG, 1X/DAY
  22. ACTEMRA [Suspect]
     Active Substance: TOCILIZUMAB
     Indication: JUVENILE IDIOPATHIC ARTHRITIS
     Dosage: UNK
     Route: 065
  23. KINERET [Suspect]
     Active Substance: ANAKINRA
     Indication: JUVENILE IDIOPATHIC ARTHRITIS
     Dosage: 150 MG, QD (44.0 DAYS)
  24. PREDNISONE. [Suspect]
     Active Substance: PREDNISONE
     Dosage: 4 MG, 1X/DAY
  25. ACTEMRA [Suspect]
     Active Substance: TOCILIZUMAB
     Dosage: 280 MILLIGRAM, QD (55 DAYS)
     Route: 065
  26. CICLOSPORIN [Suspect]
     Active Substance: CYCLOSPORINE
     Indication: JUVENILE IDIOPATHIC ARTHRITIS
     Dosage: 80 MG, QD (349.0 DAYS)
  27. INDOMETHACIN [INDOMETACIN] [Suspect]
     Active Substance: INDOMETHACIN
     Indication: STILL^S DISEASE
     Dosage: 25 MILLIGRAM, QD
     Route: 065
  28. METHOTREXATE SODIUM. [Suspect]
     Active Substance: METHOTREXATE SODIUM
     Indication: IMMUNOSUPPRESSANT DRUG THERAPY
     Dosage: 20 MG, 1X/DAY
     Route: 065
  29. ACETYLSALICYLIC ACID [Suspect]
     Active Substance: ASPIRIN
     Dosage: 80 MG, CYCLIC (Q2WEEKS)
  30. ACTEMRA [Suspect]
     Active Substance: TOCILIZUMAB
     Dosage: UNK
     Route: 065
  31. KINERET [Suspect]
     Active Substance: ANAKINRA
     Dosage: 200 MG, QD (15.0 DAYS)
  32. TINZAPARIN [Suspect]
     Active Substance: TINZAPARIN
     Dosage: 4400 DF, QD (359 DAYS)
  33. ANAKINRA [Suspect]
     Active Substance: ANAKINRA
     Dosage: 100 MG, 1X/DAY

REACTIONS (3)
  - Psoriasis [Not Recovered/Not Resolved]
  - Adrenal suppression [Not Recovered/Not Resolved]
  - Antinuclear antibody positive [Not Recovered/Not Resolved]
